FAERS Safety Report 6509615-8 (Version None)
Quarter: 2009Q4

REPORT INFORMATION
  Report Type: 
  Country: None (occurrence: None)
  Receive Date: 20091222
  Receipt Date: 20091216
  Transmission Date: 20100525
  Serious: Yes (Hospitalization)
  Sender: FDA-Public Use
  Company Number: BE-ROCHE-675414

PATIENT
  Sex: Female
  Weight: 66 kg

DRUGS (6)
  1. CAPECITABINE [Suspect]
     Indication: BREAST CANCER
     Dosage: MOSE RECENT DOSE BEFORE SAE: 06 DEC 2009, SCHEDULE: 825MG/M2, 2X/DAY FROM DAY1 TO 14,DOSE 3000MG/DAY
     Route: 048
     Dates: start: 20091125
  2. DOCETAXEL [Suspect]
     Indication: BREAST CANCER
     Dosage: MOST RECENT DOSE BEFORE SAE: 25 NOV 2009, SCHEDULE: 75MG/M2/ 3W, CYCLE: 01
     Route: 042
     Dates: start: 20091125
  3. ALPRAZOLAM [Concomitant]
     Indication: SEDATIVE THERAPY
     Dosage: FREQUENCY: PRN
     Route: 048
     Dates: start: 20090713
  4. LODOZ [Concomitant]
     Indication: HYPERTENSION
     Route: 048
     Dates: start: 20090713
  5. ZANIDIP [Concomitant]
     Indication: HYPERTENSION
     Route: 048
     Dates: start: 20090713
  6. SIMVASTATIN [Concomitant]
     Indication: PROPHYLAXIS
     Route: 048
     Dates: start: 19980101

REACTIONS (2)
  - FEBRILE NEUTROPENIA [None]
  - OESOPHAGITIS [None]
